FAERS Safety Report 13590488 (Version 2)
Quarter: 2017Q3

REPORT INFORMATION
  Report Type: Spontaneous
  Country: DE (occurrence: DE)
  Receive Date: 20170530
  Receipt Date: 20170928
  Transmission Date: 20171127
  Serious: Yes (Hospitalization, Other)
  Sender: FDA-Public Use
  Company Number: DE-GLAXOSMITHKLINE-DE2017GSK080162

PATIENT
  Age: 72 Year
  Sex: Male
  Weight: 103 kg

DRUGS (1)
  1. NUCALA [Suspect]
     Active Substance: MEPOLIZUMAB
     Indication: ASTHMA
     Dosage: UNK
     Dates: start: 20160428

REACTIONS (8)
  - Metastases to bone [Unknown]
  - Lymphadenopathy [Unknown]
  - Soft tissue swelling [Unknown]
  - Metastatic malignant melanoma [Unknown]
  - Metastases to lymph nodes [Unknown]
  - Basal cell carcinoma [Recovered/Resolved]
  - Melanocytic naevus [Recovered/Resolved]
  - Dysplastic naevus [Recovered/Resolved]

NARRATIVE: CASE EVENT DATE: 201609
